FAERS Safety Report 7918653-X (Version None)
Quarter: 2011Q4

REPORT INFORMATION
  Report Type: 
  Country: None (occurrence: None)
  Receive Date: 20111116
  Receipt Date: 20111114
  Transmission Date: 20120403
  Serious: Yes (Hospitalization)
  Sender: FDA-Public Use
  Company Number: IT-BAYER-2011-110294

PATIENT
  Age: 79 Year
  Sex: Male

DRUGS (4)
  1. ATORVASTATIN CALCIUM [Concomitant]
     Dosage: DAILY DOSE 20 MG
     Route: 048
  2. ASPIRIN [Suspect]
     Dosage: 100 MG, QD
     Route: 048
     Dates: start: 20100812, end: 20110811
  3. LOPRESSOR [Concomitant]
     Dosage: DAILY DOSE 200 MG
     Route: 048
  4. MIDRO PICO [Concomitant]
     Route: 048

REACTIONS (2)
  - MELAENA [None]
  - ANAEMIA [None]
